FAERS Safety Report 5567341-6 (Version None)
Quarter: 2007Q4

REPORT INFORMATION
  Report Type: 
  Country: None (occurrence: None)
  Receive Date: 20071130
  Receipt Date: 20070810
  Transmission Date: 20080405
  Serious: No
  Sender: FDA-Public Use
  Company Number: US200708002376

PATIENT
  Age: 75 Year
  Sex: Female

DRUGS (12)
  1. BYETTA [Suspect]
     Indication: TYPE 2 DIABETES MELLITUS
     Dosage: 5 UG, 2/D, SUBCUTANEOUS
     Route: 058
     Dates: start: 20070701
  2. GLIPIZIDE [Concomitant]
  3. KLOR-CON [Concomitant]
  4. TRIAMTERENE AND HYDROCHLOROTHIAZID (HYDROCHLOROTHIAZIDE, TRIAMTERENE) [Concomitant]
  5. ATENOLOL [Concomitant]
  6. VYTPROM) EZETIMIBE, SIMVASTATIN) [Concomitant]
  7. PRILOSEC [Concomitant]
  8. OMEGA 3 FISH OIL (FISH OIL) [Concomitant]
  9. ASPIRIN /USA/ (ACETYLSALICYLIC ACID) [Concomitant]
  10. NAPROXEN [Concomitant]
  11. ANTIHISTAMINES [Concomitant]
  12. DIAZEPAM [Concomitant]

REACTIONS (6)
  - BLOOD GLUCOSE INCREASED [None]
  - BLOOD PRESSURE DECREASED [None]
  - CONSTIPATION [None]
  - DIZZINESS [None]
  - FEELING HOT [None]
  - HYPERHIDROSIS [None]
